FAERS Safety Report 4833896-X (Version None)
Quarter: 2005Q4

REPORT INFORMATION
  Report Type: 
  Country: None (occurrence: None)
  Receive Date: 20051122
  Receipt Date: 20051118
  Transmission Date: 20060501
  Serious: Yes (Death)
  Sender: FDA-Public Use
  Company Number: LS-BOEHRINGER INGELHEIM PHARMACEUTICALS, INC.-2005-BP-20417BP

PATIENT
  Sex: Female

DRUGS (3)
  1. VIRAMUNE [Suspect]
     Indication: HIV INFECTION
     Dates: start: 20050323, end: 20050520
  2. STAVUDINE [Suspect]
     Indication: HIV INFECTION
     Dates: start: 20050323, end: 20050520
  3. LAMIVUDINE [Suspect]
     Indication: HIV INFECTION
     Dates: start: 20050323, end: 20050520

REACTIONS (7)
  - DEHYDRATION [None]
  - DIARRHOEA [None]
  - HAEMOGLOBIN DECREASED [None]
  - IMMUNE RECONSTITUTION SYNDROME [None]
  - PROTEIN URINE PRESENT [None]
  - PULMONARY TUBERCULOSIS [None]
  - URINE KETONE BODY PRESENT [None]
